FAERS Safety Report 17517406 (Version 1)
Quarter: 2020Q1

REPORT INFORMATION
  Report Type: Spontaneous
  Country: US (occurrence: US)
  Receive Date: 20200309
  Receipt Date: 20200309
  Transmission Date: 20200409
  Serious: Yes (Death, Other)
  Sender: FDA-Public Use
  Company Number: None

PATIENT
  Age: 3 Year
  Sex: Female
  Weight: 29.25 kg

DRUGS (1)
  1. PROPOFOL. [Suspect]
     Active Substance: PROPOFOL
     Indication: PRODUCT USED FOR UNKNOWN INDICATION
     Route: 042
     Dates: start: 20000805, end: 20000809

REACTIONS (6)
  - Multi-organ disorder [None]
  - Death [None]
  - Accidental death [None]
  - Head injury [None]
  - Propofol infusion syndrome [None]
  - Myocardial infarction [None]

NARRATIVE: CASE EVENT DATE: 20000809
